FAERS Safety Report 4312850-0 (Version None)
Quarter: 2004Q1

REPORT INFORMATION
  Report Type: 
  Country: None (occurrence: None)
  Receive Date: 20040304
  Receipt Date: 20040217
  Transmission Date: 20041129
  Serious: Yes (Hospitalization, Disabling, Other)
  Sender: FDA-Public Use
  Company Number: UK031217

PATIENT
  Age: 57 Year
  Sex: Male
  Weight: 92 kg

DRUGS (9)
  1. KINERET [Suspect]
     Indication: RHEUMATOID ARTHRITIS
     Dosage: 100 MG, DAILY, SC
     Route: 058
     Dates: start: 20020412, end: 20030219
  2. PREDNISONE [Suspect]
     Dosage: 9 MG, DAILY
  3. METHOTREXATE [Concomitant]
  4. CELECOXIB [Concomitant]
  5. OMEPRAZOLE [Concomitant]
  6. FOLIC ACID [Concomitant]
  7. CHOLECALCIFEROL [Concomitant]
  8. CALCIUM CARBONATE [Concomitant]
  9. ETIDRONATE DISODIUM [Concomitant]

REACTIONS (2)
  - B-CELL LYMPHOMA STAGE IV [None]
  - METASTASES TO LUNG [None]
